FAERS Safety Report 7751506-9 (Version None)
Quarter: 2011Q3

REPORT INFORMATION
  Report Type: 
  Country: None (occurrence: None)
  Receive Date: 20110914
  Receipt Date: 20110907
  Transmission Date: 20111222
  Serious: Yes (Hospitalization)
  Sender: FDA-Public Use
  Company Number: PHEH2011US02252

PATIENT
  Sex: Female

DRUGS (1)
  1. TOBI [Suspect]
     Indication: CYSTIC FIBROSIS
     Dosage: UNK UKN, BID

REACTIONS (5)
  - DISORIENTATION [None]
  - OEDEMA MOUTH [None]
  - HEADACHE [None]
  - LUNG INFECTION [None]
  - LOCAL SWELLING [None]
